FAERS Safety Report 4708130-1 (Version None)
Quarter: 2005Q3

REPORT INFORMATION
  Report Type: 
  Country: None (occurrence: None)
  Receive Date: 20050707
  Receipt Date: 20050624
  Transmission Date: 20060218
  Serious: Yes (Other)
  Sender: FDA-Public Use
  Company Number: JP-JNJFOC-20050405866

PATIENT
  Sex: Male

DRUGS (11)
  1. ITRIZOLE [Suspect]
     Indication: ONYCHOMYCOSIS
     Route: 049
  2. GLIBENCLAMIDE [Concomitant]
     Indication: DIABETES MELLITUS
     Route: 049
  3. FELODIPINE [Concomitant]
     Indication: HYPERTENSION
     Route: 049
  4. EPERISONE HYDROCHLORIDE [Concomitant]
     Route: 049
  5. PIOGLITAZONE HYDROCHLORIDE [Concomitant]
     Indication: DIABETES MELLITUS
     Route: 049
  6. DIMETICONE [Concomitant]
     Route: 049
  7. SANACTASE COMBINED DRUG [Concomitant]
     Route: 049
  8. LOXOPROFEN SODIUM [Concomitant]
     Route: 049
  9. HYDROXYZINE HCL [Concomitant]
     Indication: ECZEMA
     Route: 049
  10. BETAMETHASONE-D-CHLORPHENIRAMINE MALEATE [Concomitant]
     Indication: ECZEMA
     Route: 049
  11. ALL OTHER THERAPEUTIC PRODUCTS [Concomitant]
     Route: 049

REACTIONS (5)
  - BLOOD GLUCOSE INCREASED [None]
  - BLOOD PRESSURE INCREASED [None]
  - OEDEMA [None]
  - PO2 DECREASED [None]
  - SUPRAVENTRICULAR EXTRASYSTOLES [None]
